FAERS Safety Report 11566290 (Version 6)
Quarter: 2015Q4

REPORT INFORMATION
  Report Type: Report from Study
  Country: US (occurrence: US)
  Receive Date: 20150929
  Receipt Date: 20151202
  Transmission Date: 20160304
  Serious: Yes (Other)
  Sender: FDA-Public Use
  Company Number: US-AMGEN-USASP2015099618

PATIENT
  Age: 46 Year
  Sex: Female

DRUGS (1)
  1. ENBREL [Suspect]
     Active Substance: ETANERCEPT
     Indication: PSORIATIC ARTHROPATHY
     Dosage: 50 MG, WEEKLY
     Route: 065
     Dates: start: 20150910, end: 20151012

REACTIONS (8)
  - Musculoskeletal pain [Unknown]
  - Menstruation delayed [Unknown]
  - Ill-defined disorder [Unknown]
  - Tendon pain [Unknown]
  - Nightmare [Unknown]
  - Drug dose omission [Unknown]
  - Disability [Unknown]
  - Confusional state [Unknown]

NARRATIVE: CASE EVENT DATE: 2015
